FAERS Safety Report 4943029-7 (Version None)
Quarter: 2006Q1

REPORT INFORMATION
  Report Type: 
  Country: None (occurrence: None)
  Receive Date: 20060314
  Receipt Date: 20040525
  Transmission Date: 20060701
  Serious: Yes (Other)
  Sender: FDA-Public Use
  Company Number: US-SANOFI-SYNTHELABO-D01200401

PATIENT
  Age: 62 Year
  Sex: Male
  Weight: 93 kg

DRUGS (7)
  1. FONDAPARINUX [Suspect]
     Indication: ACUTE CORONARY SYNDROME
     Dosage: 2.5MG PER DAY
     Route: 058
     Dates: start: 20040203, end: 20040206
  2. ASPIRIN [Concomitant]
  3. GEMFIBROZIL [Concomitant]
  4. IMDUR [Concomitant]
  5. METOPROLOL [Concomitant]
  6. PLAVIX [Concomitant]
  7. PRINIVIL [Concomitant]

REACTIONS (1)
  - CATHETER RELATED COMPLICATION [None]
